FAERS Safety Report 7410058-3 (Version None)
Quarter: 2011Q2

REPORT INFORMATION
  Report Type: 
  Country: None (occurrence: None)
  Receive Date: 20110412
  Receipt Date: 20110407
  Transmission Date: 20111010
  Serious: Yes (Other)
  Sender: FDA-Public Use
  Company Number: US-AMGEN-USASP2011016671

PATIENT
  Age: 49 Year
  Sex: Female

DRUGS (4)
  1. NPLATE [Suspect]
     Dates: start: 20100708, end: 20101020
  2. PROMACTA [Concomitant]
  3. NPLATE [Suspect]
     Indication: IDIOPATHIC THROMBOCYTOPENIC PURPURA
     Dosage: 500 A?G, UNK
     Route: 058
     Dates: start: 20060107
  4. ESTRADIOL TRANSDERMAL [Concomitant]

REACTIONS (1)
  - THROMBOCYTOPENIA [None]
